FAERS Safety Report 12828303 (Version 2)
Quarter: 2016Q4

REPORT INFORMATION
  Report Type: Spontaneous
  Country: IE (occurrence: IE)
  Receive Date: 20161007
  Receipt Date: 20161018
  Transmission Date: 20170207
  Serious: Yes (Hospitalization)
  Sender: FDA-Public Use
  Company Number: IE-DSJP-DSE-2016-134095

PATIENT

DRUGS (2)
  1. OMESAR PLUS [Suspect]
     Active Substance: HYDROCHLOROTHIAZIDE\OLMESARTAN MEDOXOMIL
     Dosage: 40/25 MG, UNK
     Route: 048
     Dates: start: 2011
  2. OMESAR PLUS [Suspect]
     Active Substance: HYDROCHLOROTHIAZIDE\OLMESARTAN MEDOXOMIL
     Indication: PRODUCT USED FOR UNKNOWN INDICATION
     Dosage: 20/12.5 MG, UNK
     Route: 048
     Dates: end: 2014

REACTIONS (5)
  - Haemolysis [Unknown]
  - Blood creatinine increased [Unknown]
  - Renal impairment [Not Recovered/Not Resolved]
  - Incorrect dose administered [Recovered/Resolved]
  - Blood potassium increased [Recovered/Resolved]
